FAERS Safety Report 9228103 (Version 2)
Quarter: 2013Q4

REPORT INFORMATION
  Report Type: Spontaneous
  Country: US (occurrence: US)
  Receive Date: 20130412
  Receipt Date: 20131126
  Transmission Date: 20140711
  Serious: Yes (Other)
  Sender: FDA-Public Use
  Company Number: US-009507513-1304USA003227

PATIENT
  Sex: Female
  Weight: 62.59 kg

DRUGS (1)
  1. FOSAMAX [Suspect]
     Dosage: UNK
     Route: 048
     Dates: start: 199606

REACTIONS (16)
  - Hip fracture [Unknown]
  - Pelvic fracture [Unknown]
  - Femur fracture [Recovering/Resolving]
  - Hypertension [Not Recovered/Not Resolved]
  - Organ donor [Unknown]
  - Thyroid disorder [Unknown]
  - Anaemia [Unknown]
  - Muscle spasms [Unknown]
  - Limb discomfort [Unknown]
  - Spinal osteoarthritis [Unknown]
  - Intervertebral disc disorder [Unknown]
  - Fall [Unknown]
  - Pubis fracture [Unknown]
  - Fractured ischium [Unknown]
  - Spinal compression fracture [Unknown]
  - Spinal compression fracture [Unknown]
